FAERS Safety Report 21181232 (Version 1)
Quarter: 2022Q3

REPORT INFORMATION
  Report Type: Spontaneous
  Country: US (occurrence: US)
  Receive Date: 20220806
  Receipt Date: 20220806
  Transmission Date: 20221027
  Serious: No
  Sender: FDA-Public Use
  Company Number: US-BRISTOL-MYERS SQUIBB COMPANY-2022-080705

PATIENT
  Age: 94 Year
  Sex: Female

DRUGS (1)
  1. ELIQUIS [Suspect]
     Active Substance: APIXABAN
     Indication: Cardiac disorder
     Dosage: DOSE : 2.5 MG;     FREQ : TWICE DAILY
     Route: 048
     Dates: start: 202204

REACTIONS (3)
  - Acne [Unknown]
  - Intentional product use issue [Unknown]
  - Amnesia [Unknown]

NARRATIVE: CASE EVENT DATE: 20220723
